FAERS Safety Report 15658477 (Version 2)
Quarter: 2018Q4

REPORT INFORMATION
  Report Type: Report from Study
  Country: ES (occurrence: ES)
  Receive Date: 20181126
  Receipt Date: 20181129
  Transmission Date: 20190205
  Serious: Yes (Other)
  Sender: FDA-Public Use
  Company Number: ES-PORTOLA PHARMACEUTICALS, INC.-2018ES000017

PATIENT
  Age: 85 Year
  Sex: Male

DRUGS (3)
  1. APIXABAN [Concomitant]
     Active Substance: APIXABAN
     Dosage: 2.5 MG Q 12H
     Dates: end: 20170802
  2. ANDEXXA [Suspect]
     Active Substance: ANDEXANET ALFA
     Dosage: 240 MG, INFUSION
     Route: 042
     Dates: start: 20170803, end: 20170803
  3. ANDEXXA [Suspect]
     Active Substance: ANDEXANET ALFA
     Indication: PROCOAGULANT THERAPY
     Dosage: 400 MG, BOLUS
     Route: 040
     Dates: start: 20170803, end: 20170803

REACTIONS (1)
  - Infusion related reaction [Recovered/Resolved]

NARRATIVE: CASE EVENT DATE: 20170803
